FAERS Safety Report 6330413-2 (Version None)
Quarter: 2009Q3

REPORT INFORMATION
  Report Type: 
  Country: None (occurrence: None)
  Receive Date: 20090826
  Receipt Date: 20090826
  Transmission Date: 20100115
  Serious: Yes (Other)
  Sender: FDA-Public Use
  Company Number: None

PATIENT
  Age: 52 Year
  Sex: Female
  Weight: 122.4712 kg

DRUGS (1)
  1. ARMOUR THYROID [Suspect]
     Indication: PSYCHOMOTOR HYPERACTIVITY
     Dosage: 2 GRAMS
     Dates: start: 20050801, end: 20090825

REACTIONS (7)
  - ALOPECIA [None]
  - ARTHRALGIA [None]
  - FATIGUE [None]
  - MYALGIA [None]
  - PALPITATIONS [None]
  - UNEVALUABLE EVENT [None]
  - WEIGHT INCREASED [None]
